FAERS Safety Report 7301306-9 (Version None)
Quarter: 2010Q4

REPORT INFORMATION
  Report Type: 
  Country: None (occurrence: None)
  Receive Date: 20101229
  Receipt Date: 20101108
  Transmission Date: 20110411
  Serious: No
  Sender: FDA-Public Use
  Company Number: 1000017220

PATIENT
  Age: 60 Year
  Sex: Female

DRUGS (3)
  1. BYSTOLIC [Suspect]
     Indication: BLOOD PRESSURE
     Dosage: 5 MG (5 MG, 1 IN 1 D), ORAL, 10 MG (10 MG, 1 IN 1 D), ORAL
     Route: 048
     Dates: start: 20090101
  2. DIAZEPAM [Suspect]
  3. LORAZEPAM [Concomitant]

REACTIONS (4)
  - ABDOMINAL DISCOMFORT [None]
  - FATIGUE [None]
  - HEADACHE [None]
  - PANIC ATTACK [None]
